FAERS Safety Report 7630903-6 (Version None)
Quarter: 2011Q3

REPORT INFORMATION
  Report Type: 
  Country: None (occurrence: None)
  Receive Date: 20110724
  Receipt Date: 20110719
  Transmission Date: 20111222
  Serious: Yes (Hospitalization)
  Sender: FDA-Public Use
  Company Number: US-BRISTOL-MYERS SQUIBB COMPANY-15910581

PATIENT
  Age: 55 Year
  Sex: Male
  Weight: 152 kg

DRUGS (11)
  1. ALLOPURINOL [Concomitant]
  2. CANDESARTAN CILEXETIL [Concomitant]
  3. IPILIMUMAB [Suspect]
     Indication: MALIGNANT MELANOMA
     Dosage: LAST ADMINISTERED:7JUL11.10 MG/KG Q12W
     Route: 042
     Dates: start: 20110613
  4. PROTONIX [Concomitant]
     Route: 042
  5. ENALAPRIL MALEATE [Concomitant]
     Route: 042
  6. LOPRESSOR [Concomitant]
     Route: 042
  7. FENTANYL [Concomitant]
     Route: 062
  8. OXYCONTIN [Concomitant]
  9. ZOFRAN [Concomitant]
  10. JANUVIA [Concomitant]
  11. SIMVASTATIN [Concomitant]

REACTIONS (3)
  - NAUSEA [None]
  - HAEMORRHOIDS [None]
  - VOMITING [None]
